FAERS Safety Report 21993242 (Version 2)
Quarter: 2023Q1

REPORT INFORMATION
  Report Type: Report from Study
  Country: AU (occurrence: None)
  Receive Date: 20230215
  Receipt Date: 20230228
  Transmission Date: 20230417
  Serious: Yes (Hospitalization)
  Sender: FDA-Public Use
  Company Number: AU-ROCHE-3258049

PATIENT
  Age: 57 Year
  Sex: Female
  Weight: 89.6 kg

DRUGS (16)
  1. ADO-TRASTUZUMAB EMTANSINE [Suspect]
     Active Substance: ADO-TRASTUZUMAB EMTANSINE
     Indication: Breast cancer metastatic
     Dosage: LAST DOSE PRIOR TO EVENT ON 12-DEC-2022 AND COMPLETED C34D1
     Route: 042
     Dates: start: 20210111
  2. TUCATINIB [Suspect]
     Active Substance: TUCATINIB
     Indication: Breast cancer metastatic
     Route: 048
     Dates: start: 20210111
  3. MAGNESIUM [Concomitant]
     Active Substance: MAGNESIUM
     Dates: start: 20211015
  4. PHENERGAN [Concomitant]
     Active Substance: PROMETHAZINE HYDROCHLORIDE
     Dates: start: 20211214
  5. IBUPROFEN [Concomitant]
     Active Substance: IBUPROFEN
     Dates: start: 20210915
  6. ACETAMINOPHEN [Concomitant]
     Active Substance: ACETAMINOPHEN
     Dates: start: 20220616
  7. LEVOTHYROXINE SODIUM [Concomitant]
     Active Substance: LEVOTHYROXINE SODIUM
     Dates: start: 20220810
  8. CANDESARTAN [Concomitant]
     Active Substance: CANDESARTAN
  9. PANTOPRAZOLE [Concomitant]
     Active Substance: PANTOPRAZOLE
  10. NASONEX [Concomitant]
     Active Substance: MOMETASONE FUROATE
  11. BIOTIN [Concomitant]
     Active Substance: BIOTIN
  12. FLUOROMETHOLONE [Concomitant]
     Active Substance: FLUOROMETHOLONE
  13. LACTOBACILLUS PARACASEI DSM 24733 [Concomitant]
     Active Substance: LACTOBACILLUS PARACASEI DSM 24733
     Dates: start: 20210407
  14. THYROXINE [Concomitant]
     Active Substance: LEVOTHYROXINE
  15. ASPIRIN [Concomitant]
     Active Substance: ASPIRIN
  16. METHYLPREDNISOLONE [Concomitant]
     Active Substance: METHYLPREDNISOLONE

REACTIONS (2)
  - Cerebrovascular accident [Recovered/Resolved]
  - Seizure [Recovered/Resolved]

NARRATIVE: CASE EVENT DATE: 20221231
